FAERS Safety Report 9348436 (Version 2)
Quarter: 2013Q3

REPORT INFORMATION
  Report Type: Spontaneous
  Country: US (occurrence: US)
  Receive Date: 20130614
  Receipt Date: 20130805
  Transmission Date: 20140515
  Serious: No
  Sender: FDA-Public Use
  Company Number: US-PFIZER INC-2013175693

PATIENT
  Age: 69 Year
  Sex: Female
  Weight: 68 kg

DRUGS (2)
  1. ESTRING [Suspect]
     Indication: VULVOVAGINAL DRYNESS
     Dosage: 2 MG, ONCE IN THREE MONTHS
     Route: 067
     Dates: start: 20130514, end: 201306
  2. ESTRING [Suspect]
     Indication: ATROPHIC VULVOVAGINITIS

REACTIONS (6)
  - Muscle spasms [Recovered/Resolved]
  - Pain in extremity [Recovered/Resolved]
  - Abdominal distension [Recovered/Resolved]
  - Breast tenderness [Recovered/Resolved]
  - Drug intolerance [Unknown]
  - Drug ineffective [Not Recovered/Not Resolved]
